FAERS Safety Report 14799084 (Version 2)
Quarter: 2018Q2

REPORT INFORMATION
  Report Type: Spontaneous
  Country: FR (occurrence: FR)
  Receive Date: 20180424
  Receipt Date: 20180604
  Transmission Date: 20180711
  Serious: Yes (Hospitalization, Other)
  Sender: FDA-Public Use
  Company Number: FR-009507513-1711FRA003356

PATIENT
  Age: 38 Year
  Sex: Female

DRUGS (17)
  1. RIFABUTIN. [Concomitant]
     Active Substance: RIFABUTIN
     Dosage: UNK
  2. BACTRIM [Concomitant]
     Active Substance: SULFAMETHOXAZOLE\TRIMETHOPRIM
     Dosage: UNK
  3. ETHAMBUTOL [Concomitant]
     Active Substance: ETHAMBUTOL HYDROCHLORIDE
     Dosage: UNK
  4. ISENTRESS [Suspect]
     Active Substance: RALTEGRAVIR POTASSIUM
     Indication: HIV INFECTION
     Dosage: 2 DF, QD, ; FORMULATION ALSO PROVIDED AS FILM-COATED TABLET
     Route: 048
     Dates: start: 20161228
  5. RIFAMPIN. [Concomitant]
     Active Substance: RIFAMPIN
     Dosage: UNK
  6. IZILOX [Concomitant]
     Active Substance: MOXIFLOXACIN HYDROCHLORIDE
     Dosage: UNK
  7. TRUVADA [Suspect]
     Active Substance: EMTRICITABINE\TENOFOVIR DISOPROXIL FUMARATE
     Indication: HIV INFECTION
     Dosage: 1 DF, QD
     Route: 048
  8. PEGASYS [Suspect]
     Active Substance: PEGINTERFERON ALFA-2A
     Dosage: UNK
     Route: 065
     Dates: start: 20170525
  9. DIFFU-K [Concomitant]
     Active Substance: POTASSIUM CHLORIDE
     Dosage: UNK
  10. SPECIAFOLDINE [Concomitant]
     Active Substance: FOLIC ACID
     Dosage: UNK
  11. LYRICA [Concomitant]
     Active Substance: PREGABALIN
     Dosage: UNK
  12. PYRAZINAMIDE. [Concomitant]
     Active Substance: PYRAZINAMIDE
     Dosage: UNK
     Route: 065
     Dates: end: 20161128
  13. PEGASYS [Suspect]
     Active Substance: PEGINTERFERON ALFA-2A
     Indication: HEPATITIS D
     Dosage: 180 MICROGRAM (ALSO REPORTED AS MG), QW
     Route: 065
     Dates: start: 20170124, end: 20170211
  14. ISONIAZID. [Concomitant]
     Active Substance: ISONIAZID
     Dosage: RESTARTED AT A LOWER DOSE
     Route: 065
     Dates: start: 20161207
  15. PHOSPHONEUROS [Concomitant]
     Active Substance: CALCIUM PHOSPHATE, DIBASIC, ANHYDROUS\MAGNESIUM GLYCEROPHOSPHATE\PHOSPHORIC ACID\SODIUM PHOSPHATE, DIBASIC
     Dosage: UNK
  16. PRINCI B FORT [Concomitant]
     Dosage: UNK
  17. BACTRIM [Concomitant]
     Active Substance: SULFAMETHOXAZOLE\TRIMETHOPRIM
     Route: 065

REACTIONS (3)
  - Product use in unapproved indication [Unknown]
  - Off label use [Unknown]
  - Immune reconstitution inflammatory syndrome [Recovered/Resolved]

NARRATIVE: CASE EVENT DATE: 20170211
